FAERS Safety Report 14290522 (Version 1)
Quarter: 2017Q4

REPORT INFORMATION
  Report Type: Spontaneous
  Country: US (occurrence: US)
  Receive Date: 20171215
  Receipt Date: 20171215
  Transmission Date: 20180321
  Serious: No
  Sender: FDA-Public Use
  Company Number: US-ENDO PHARMACEUTICALS INC-2017-003352

PATIENT
  Age: 68 Year
  Sex: Male
  Weight: 100.68 kg

DRUGS (6)
  1. ASPIRIN EC LOW DOSE 81 MG [Concomitant]
     Active Substance: ASPIRIN
     Indication: CARDIOVASCULAR EVENT PROPHYLAXIS
  2. TESTIM [Suspect]
     Active Substance: TESTOSTERONE
     Indication: HORMONE LEVEL ABNORMAL
     Dosage: 50 MG, DAILY
     Route: 062
     Dates: start: 2015
  3. TAMSULOSIN HCL [Concomitant]
     Active Substance: TAMSULOSIN
     Indication: URETHRAL STENOSIS
  4. DOC-Q-LACE SOFTGEL [Concomitant]
     Active Substance: DOCUSATE SODIUM
     Indication: INADEQUATE DIET
  5. ONE A DAY MEN^S [Concomitant]
     Active Substance: VITAMINS
     Indication: VITAMIN SUPPLEMENTATION
  6. FISH OIL [Concomitant]
     Active Substance: FISH OIL
     Indication: FAECES HARD

REACTIONS (8)
  - Application site burn [Not Recovered/Not Resolved]
  - Off label use [Not Recovered/Not Resolved]
  - Acne [Not Recovered/Not Resolved]
  - Application site exfoliation [Not Recovered/Not Resolved]
  - Vomiting [Recovered/Resolved]
  - Urinary hesitation [Not Recovered/Not Resolved]
  - Large intestine polyp [Unknown]
  - Wrong technique in product usage process [Unknown]

NARRATIVE: CASE EVENT DATE: 2015
